FAERS Safety Report 5761229-3 (Version None)
Quarter: 2008Q2

REPORT INFORMATION
  Report Type: 
  Country: None (occurrence: None)
  Receive Date: 20080606
  Receipt Date: 20080529
  Transmission Date: 20081010
  Serious: Yes (Hospitalization, Other)
  Sender: FDA-Public Use
  Company Number: PHHY2008JP03878

PATIENT
  Sex: Male

DRUGS (3)
  1. LAMISIL [Suspect]
     Dosage: 125 MG/DAY
     Route: 048
     Dates: start: 20070323, end: 20070525
  2. LAMISIL [Suspect]
     Indication: NAIL DISORDER
  3. ALLELOCK [Concomitant]
     Indication: ECZEMA
     Dosage: 10 MG/DAY
     Route: 048
     Dates: start: 20070319, end: 20070423

REACTIONS (5)
  - ALANINE AMINOTRANSFERASE INCREASED [None]
  - ASPARTATE AMINOTRANSFERASE INCREASED [None]
  - GAMMA-GLUTAMYLTRANSFERASE INCREASED [None]
  - HEPATIC FUNCTION ABNORMAL [None]
  - HEPATITIS A [None]
